FAERS Safety Report 5093172-X (Version None)
Quarter: 2006Q3

REPORT INFORMATION
  Report Type: 
  Country: None (occurrence: None)
  Receive Date: 20060728
  Receipt Date: 20060627
  Transmission Date: 20061208
  Serious: No
  Sender: FDA-Public Use
  Company Number: 254522

PATIENT
  Sex: Female

DRUGS (3)
  1. LEVEMIR FLEXPEN(INSULIN DETEMIR) SOLUTION FOR INJECTION, .0024MOL/L [Suspect]
     Indication: INSULIN-REQUIRING TYPE II DIABETES MELLITUS
     Dosage: 67 LU, QD, SUBCUTANEOUS
     Route: 058
     Dates: start: 20060404
  2. NOVOLOG [Concomitant]
  3. GLUCOPHAGE [Concomitant]

REACTIONS (1)
  - INJECTION SITE ERYTHEMA [None]
